FAERS Safety Report 5492017-3 (Version None)
Quarter: 2007Q4

REPORT INFORMATION
  Report Type: 
  Country: None (occurrence: None)
  Receive Date: 20071018
  Receipt Date: 20071018
  Transmission Date: 20080405
  Serious: No
  Sender: FDA-Public Use
  Company Number: None

PATIENT
  Age: 56 Year
  Sex: Male

DRUGS (1)
  1. MELOXICAM [Suspect]
     Indication: PAIN
     Dosage: 7.5MG   EVERY DAY  PO
     Route: 048
     Dates: start: 20060330, end: 20070924

REACTIONS (2)
  - NAUSEA [None]
  - VOMITING [None]
